FAERS Safety Report 9447577 (Version 1)
Quarter: 2013Q3

REPORT INFORMATION
  Report Type: Spontaneous
  Country: DE (occurrence: DE)
  Receive Date: 20130808
  Receipt Date: 20130808
  Transmission Date: 20140515
  Serious: Yes (Hospitalization, Other)
  Sender: FDA-Public Use
  Company Number: DE-JNJFOC-20130715500

PATIENT
  Age: 3 Day
  Sex: Female
  Weight: 3.67 kg

DRUGS (6)
  1. DUROGESIC SMAT [Suspect]
     Indication: BACK PAIN
     Route: 064
     Dates: end: 20081031
  2. DUROGESIC SMAT [Suspect]
     Indication: BACK PAIN
     Route: 064
     Dates: start: 20080124
  3. PROSTAGLANDIN A1 [Suspect]
     Indication: UTERINE HYPOTONUS
     Route: 064
  4. INSULIN [Suspect]
     Indication: GESTATIONAL DIABETES
     Route: 064
  5. OXYTOCIN [Suspect]
     Indication: UTERINE HYPOTONUS
     Route: 064
  6. CYTOTEC [Suspect]
     Indication: LABOUR INDUCTION
     Route: 064

REACTIONS (3)
  - Drug withdrawal syndrome neonatal [Recovered/Resolved]
  - Foetal exposure during pregnancy [Recovered/Resolved]
  - Feeding disorder neonatal [Recovered/Resolved]
